FAERS Safety Report 17836072 (Version 1)
Quarter: 2020Q2

REPORT INFORMATION
  Report Type: Spontaneous
  Country: US (occurrence: US)
  Receive Date: 20200528
  Receipt Date: 20200528
  Transmission Date: 20200714
  Serious: No
  Sender: FDA-Public Use
  Company Number: US-BAYER-2020-083355

PATIENT

DRUGS (1)
  1. XOFIGO [Suspect]
     Active Substance: RADIUM RA-223 DICHLORIDE
     Indication: OSTEOSARCOMA METASTATIC
     Dosage: 55KBQ / KG

REACTIONS (2)
  - Off label use [None]
  - Product use in unapproved indication [None]
